FAERS Safety Report 14149021 (Version 1)
Quarter: 2017Q4

REPORT INFORMATION
  Report Type: Report from Study
  Country: HU (occurrence: HU)
  Receive Date: 20171101
  Receipt Date: 20171101
  Transmission Date: 20180321
  Serious: Yes (Hospitalization)
  Sender: FDA-Public Use
  Company Number: PHHO2017HU001107

PATIENT
  Age: 82 Year
  Sex: Male
  Weight: 98 kg

DRUGS (11)
  1. GLIMEPIRID HEXAL [Concomitant]
     Indication: DIABETES MELLITUS
     Dosage: 4 MG, TID
     Route: 048
     Dates: start: 20121201
  2. ACZ885 [Suspect]
     Active Substance: CANAKINUMAB
     Indication: CARDIOVASCULAR EVENT PROPHYLAXIS
     Dosage: 50 MG, QUARTERLY
     Route: 058
     Dates: start: 20140206
  3. GLIMEPIRID HEXAL [Concomitant]
     Dosage: 3 MG, ONCE/SINGLE
     Route: 048
     Dates: end: 20170115
  4. MILURIT [Concomitant]
     Active Substance: ALLOPURINOL
     Indication: HYPERURICAEMIA
     Dosage: 100 MG, BID
     Route: 048
     Dates: start: 20121201
  5. ATORIS [Concomitant]
     Active Substance: ATORVASTATIN CALCIUM
     Indication: HYPERCHOLESTEROLAEMIA
     Dosage: 40 MG, ONCE/SINGLE
     Route: 048
     Dates: start: 20120615
  6. LIPIDIL [Concomitant]
     Active Substance: FENOFIBRATE
     Indication: CARDIAC FAILURE CHRONIC
     Dosage: 267 MG, ONCE/SINGLE
     Route: 048
     Dates: start: 20120615
  7. TRITACE [Concomitant]
     Active Substance: RAMIPRIL
     Indication: CARDIAC FAILURE CHRONIC
     Dosage: 2.5 MG, BID
     Route: 048
     Dates: start: 20120927
  8. ASPIRIN. [Concomitant]
     Active Substance: ASPIRIN
     Indication: MYOCARDIAL ISCHAEMIA
     Dosage: 100 MG, ONCE/SINGLE
     Route: 048
     Dates: start: 19940601
  9. CARVOL [Concomitant]
     Indication: CARDIAC FAILURE CHRONIC
     Dosage: 12.5 MG, BID
     Route: 048
     Dates: start: 20120615, end: 20170115
  10. FURON [Concomitant]
     Active Substance: FUROSEMIDE
     Indication: CARDIAC FAILURE CHRONIC
     Dosage: 40 MG, QOD
     Route: 048
     Dates: start: 20120927
  11. DUAMILD [Concomitant]
     Indication: PROPHYLAXIS
     Dosage: 0.4 MG, QD
     Route: 048
     Dates: start: 20140305

REACTIONS (1)
  - Bronchitis [Recovered/Resolved]

NARRATIVE: CASE EVENT DATE: 20170115
